FAERS Safety Report 7430538-4 (Version None)
Quarter: 2011Q2

REPORT INFORMATION
  Report Type: 
  Country: None (occurrence: None)
  Receive Date: 20110421
  Receipt Date: 20100219
  Transmission Date: 20111010
  Serious: No
  Sender: FDA-Public Use
  Company Number: US-ASTRAZENECA-2010SE07461

PATIENT
  Age: 40 Year
  Sex: Female
  Weight: 43.1 kg

DRUGS (3)
  1. METOPROLOL SUCCINATE [Suspect]
     Route: 048
  2. METOPROLOL SUCCINATE [Suspect]
     Route: 048
  3. METOPROLOL SUCCINATE [Suspect]
     Route: 048

REACTIONS (5)
  - DRUG INTOLERANCE [None]
  - WEIGHT DECREASED [None]
  - PALPITATIONS [None]
  - PYREXIA [None]
  - FEELING ABNORMAL [None]
